FAERS Safety Report 7804052-8 (Version None)
Quarter: 2011Q4

REPORT INFORMATION
  Report Type: 
  Country: None (occurrence: None)
  Receive Date: 20111010
  Receipt Date: 20110930
  Transmission Date: 20120403
  Serious: Yes (Other)
  Sender: FDA-Public Use
  Company Number: US-VERTEX PHARMACEUTICALS INC.-AE-2011-001949

PATIENT
  Sex: Female
  Weight: 55.388 kg

DRUGS (4)
  1. INDERAL [Concomitant]
     Indication: MIGRAINE
     Route: 048
  2. PEGASYS [Concomitant]
     Indication: HEPATITIS C
     Route: 058
     Dates: start: 20110821
  3. RIBAVIRIN [Concomitant]
     Indication: HEPATITIS C
     Route: 048
     Dates: start: 20110821
  4. INCIVEK [Suspect]
     Indication: HEPATITIS C
     Route: 048
     Dates: start: 20110821

REACTIONS (3)
  - PRURITUS [None]
  - ORAL CANDIDIASIS [None]
  - SUICIDAL IDEATION [None]
